FAERS Safety Report 5429876-6 (Version None)
Quarter: 2007Q3

REPORT INFORMATION
  Report Type: 
  Country: None (occurrence: None)
  Receive Date: 20070731
  Receipt Date: 20070411
  Transmission Date: 20080115
  Serious: No
  Sender: FDA-Public Use
  Company Number: US200704002675

PATIENT
  Age: 57 Year
  Sex: Female
  Weight: 75.7 kg

DRUGS (5)
  1. BYETTA [Suspect]
     Indication: TYPE 2 DIABETES MELLITUS
     Dosage: 5 UG, SUBCUTANEOUS   10 UG, 2/D, SUBCUTANEOUS
     Route: 058
     Dates: start: 20070101, end: 20070201
  2. BYETTA [Suspect]
     Indication: TYPE 2 DIABETES MELLITUS
     Dosage: 5 UG, SUBCUTANEOUS   10 UG, 2/D, SUBCUTANEOUS
     Route: 058
     Dates: start: 20070201
  3. METFORMIN HCL [Concomitant]
  4. AVANDIA [Concomitant]
  5. GLYBURIDE [Concomitant]

REACTIONS (9)
  - ACCIDENTAL NEEDLE STICK [None]
  - ANOREXIA [None]
  - BREAST ATROPHY [None]
  - CONSTIPATION [None]
  - EARLY SATIETY [None]
  - GLYCOSYLATED HAEMOGLOBIN INCREASED [None]
  - NODULE [None]
  - SCRATCH [None]
  - WEIGHT DECREASED [None]
